FAERS Safety Report 16551104 (Version 1)
Quarter: 2019Q3

REPORT INFORMATION
  Report Type: Spontaneous
  Country: US (occurrence: US)
  Receive Date: 20190709
  Receipt Date: 20190709
  Transmission Date: 20191004
  Serious: No
  Sender: FDA-Public Use
  Company Number: None

PATIENT
  Age: 43 Year
  Sex: Male
  Weight: 81 kg

DRUGS (1)
  1. EMGALITY [Suspect]
     Active Substance: GALCANEZUMAB-GNLM
     Indication: CLUSTER HEADACHE
     Dosage: ?          QUANTITY:1 INJECTION(S);OTHER FREQUENCY:1 PER MONTH;?
     Route: 058
     Dates: start: 20190628

REACTIONS (5)
  - Restlessness [None]
  - Insomnia [None]
  - Tinnitus [None]
  - Ear congestion [None]
  - Anxiety [None]
